FAERS Safety Report 4315831-6 (Version None)
Quarter: 2004Q1

REPORT INFORMATION
  Report Type: 
  Country: None (occurrence: None)
  Receive Date: 20040310
  Receipt Date: 20040302
  Transmission Date: 20041129
  Serious: Yes (Life-Threatening)
  Sender: FDA-Public Use
  Company Number: 2004SE01171

PATIENT
  Age: 76 Year
  Sex: Female

DRUGS (9)
  1. ZESTRIL [Suspect]
     Indication: CARDIAC FAILURE
     Dosage: 2.5 MG QD PO
     Route: 048
     Dates: start: 20040213, end: 20040215
  2. VOLTAREN [Suspect]
     Indication: PAIN
     Dosage: 50 MG TID PO
     Route: 048
     Dates: start: 20040213, end: 20040215
  3. KALEORID [Concomitant]
  4. MAREVAN [Concomitant]
  5. CARDURAN [Concomitant]
  6. FUROSEMIDE [Concomitant]
  7. PENICILLIN [Concomitant]
  8. DIGITOXIN INJ [Concomitant]
  9. COZAAR [Concomitant]

REACTIONS (2)
  - DRUG INTERACTION [None]
  - RENAL FAILURE ACUTE [None]
